FAERS Safety Report 23312079 (Version 1)
Quarter: 2023Q4

REPORT INFORMATION
  Report Type: Spontaneous
  Country: DE (occurrence: DE)
  Receive Date: 20231219
  Receipt Date: 20231219
  Transmission Date: 20240109
  Serious: Yes (Other)
  Sender: FDA-Public Use
  Company Number: DE-ALKEM LABORATORIES LIMITED-DE-ALKEM-2023-15648

PATIENT
  Sex: Male

DRUGS (6)
  1. LACOSAMIDE [Suspect]
     Active Substance: LACOSAMIDE
     Indication: Partial seizures
     Dosage: UNK
     Route: 065
  2. LEVETIRACETAM [Suspect]
     Active Substance: LEVETIRACETAM
     Indication: Partial seizures
     Dosage: UNK
     Route: 065
  3. PERAMPANEL [Suspect]
     Active Substance: PERAMPANEL
     Indication: Partial seizures
     Dosage: 8 MILLIGRAM, TID (EVERY 8 HOUR)
     Route: 065
     Dates: start: 20230526
  4. OXCARBAZEPINE [Suspect]
     Active Substance: OXCARBAZEPINE
     Indication: Partial seizures
     Dosage: UNK
     Route: 065
  5. SULTHIAME [Suspect]
     Active Substance: SULTHIAME
     Indication: Partial seizures
     Dosage: UNK
     Route: 065
     Dates: start: 20230526
  6. VALPROATE [Suspect]
     Active Substance: VALPROIC ACID
     Indication: Partial seizures
     Dosage: 300 MILLIGRAM, EVERY 12 DAY
     Route: 065
     Dates: start: 20230605

REACTIONS (10)
  - General physical health deterioration [Unknown]
  - Epilepsy [Unknown]
  - Hallucination [Unknown]
  - Psychotic disorder [Unknown]
  - Gait disturbance [Unknown]
  - Laziness [Unknown]
  - Eczema [Unknown]
  - Dysarthria [Unknown]
  - Gait disturbance [Unknown]
  - Fatigue [Unknown]
